FAERS Safety Report 9265991 (Version 2)
Quarter: 2013Q4

REPORT INFORMATION
  Report Type: Spontaneous
  Country: US (occurrence: US)
  Receive Date: 20130501
  Receipt Date: 20131004
  Transmission Date: 20140711
  Serious: Yes (Hospitalization)
  Sender: FDA-Public Use
  Company Number: US-B.I. PHARMACEUTICALS,INC./RIDGEFIELD-2013-BI-11936BP

PATIENT
  Age: 79 Year
  Sex: Male
  Weight: 89.36 kg

DRUGS (10)
  1. PRADAXA [Suspect]
     Indication: ANTICOAGULANT THERAPY
     Dosage: 300 MG
     Dates: start: 20110808, end: 20111006
  2. PRADAXA [Suspect]
     Indication: ATRIAL FIBRILLATION
  3. METFORMIN [Concomitant]
  4. LEVOTHYROXINE [Concomitant]
  5. DIOVAN [Concomitant]
  6. AMLODIPINE [Concomitant]
  7. DOXAZOSIN [Concomitant]
  8. ASPIRIN [Concomitant]
  9. DOXYLAMINE [Concomitant]
  10. LABETALOL [Concomitant]

REACTIONS (3)
  - Upper gastrointestinal haemorrhage [Unknown]
  - Haemorrhagic anaemia [Unknown]
  - Melaena [Recovered/Resolved]
